FAERS Safety Report 9306946 (Version 1)
Quarter: 2013Q2

REPORT INFORMATION
  Report Type: Spontaneous
  Country: US (occurrence: US)
  Receive Date: 20130523
  Receipt Date: 20130523
  Transmission Date: 20140414
  Serious: No
  Sender: FDA-Public Use
  Company Number: US-AMGEN-USASP2012077974

PATIENT
  Age: 88 Year
  Sex: Male

DRUGS (19)
  1. PROLIA [Suspect]
     Indication: OSTEOPOROSIS
     Dosage: UNK
  2. ARANESP [Suspect]
     Indication: ANAEMIA
     Dosage: UNK UNK, Q6WK
  3. ZOLOFT [Concomitant]
     Dosage: UNK
  4. PANCREASE                          /00014701/ [Concomitant]
     Dosage: UNK
  5. AVAPRO [Concomitant]
     Dosage: UNK
  6. CALCIUM [Concomitant]
     Dosage: UNK
  7. VITAMIN D                          /00107901/ [Concomitant]
  8. AMLODIPINE [Concomitant]
     Dosage: UNK
  9. LOVASTATIN [Concomitant]
     Dosage: UNK
  10. CLONIDINE [Concomitant]
     Dosage: 0.1 MG, QWK
  11. NOVOLOG [Concomitant]
     Dosage: 8 IU, UNK
  12. LANTUS [Concomitant]
     Dosage: UNK
  13. PRESERVISION [Concomitant]
     Dosage: UNK
  14. TESTOSTERONE [Concomitant]
     Dosage: UNK UNK, Q3WK
  15. ALLOPURINOL [Concomitant]
     Dosage: UNK
  16. BABY ASPIRIN [Concomitant]
     Dosage: UNK
  17. HYDRALAZINE [Concomitant]
     Dosage: UNK
  18. METOPROLOL [Concomitant]
     Dosage: UNK
  19. PANTOPRAZOLE [Concomitant]
     Dosage: UNK

REACTIONS (3)
  - Tooth disorder [Unknown]
  - Blood glucose abnormal [Unknown]
  - Bone pain [Not Recovered/Not Resolved]
